FAERS Safety Report 5830235-2 (Version None)
Quarter: 2008Q3

REPORT INFORMATION
  Report Type: 
  Country: None (occurrence: None)
  Receive Date: 20080801
  Receipt Date: 20080728
  Transmission Date: 20090109
  Serious: Yes (Hospitalization)
  Sender: FDA-Public Use
  Company Number: B0529730A

PATIENT
  Age: 47 Year
  Sex: Male
  Weight: 55.5 kg

DRUGS (7)
  1. LAPATINIB [Suspect]
     Dosage: 500MG PER DAY
     Route: 048
     Dates: start: 20080619
  2. DOCETAXEL [Suspect]
     Dosage: 99MG PER DAY
     Route: 042
     Dates: start: 20080710
  3. CISPLATIN [Suspect]
     Dosage: 125MG PER DAY
     Route: 042
     Dates: start: 20080619
  4. FLUOROURACIL [Suspect]
     Route: 042
     Dates: start: 20080619
  5. DAFALGAN [Concomitant]
     Indication: PAIN
     Dosage: 1G PER DAY
     Route: 048
     Dates: start: 20080712, end: 20080712
  6. BUSCOPAN [Concomitant]
     Indication: PAIN
     Dosage: 20MG PER DAY
     Route: 030
     Dates: start: 20080712, end: 20080712
  7. TRAMADOL HCL [Concomitant]
     Indication: PAIN
     Dosage: 15DROP AS REQUIRED
     Route: 048
     Dates: start: 20080711, end: 20080715

REACTIONS (1)
  - BACK PAIN [None]
